FAERS Safety Report 10199959 (Version 1)
Quarter: 2014Q2

REPORT INFORMATION
  Report Type: Spontaneous
  Country: GB (occurrence: GB)
  Receive Date: 20140527
  Receipt Date: 20140527
  Transmission Date: 20141212
  Serious: Yes (Other)
  Sender: FDA-Public Use
  Company Number: PHHY2014GB062387

PATIENT
  Age: 3 Year
  Sex: Female

DRUGS (5)
  1. PHENOXYMETHYLPENICILLIN [Suspect]
     Dates: start: 20140428
  2. DIPROBASE [Concomitant]
     Dates: start: 20140312, end: 20140313
  3. IBUPROFEN [Concomitant]
     Dates: start: 20140428
  4. OILATUM [Concomitant]
     Dates: start: 20140312, end: 20140313
  5. PARACETAMOL [Concomitant]
     Dates: start: 20140428

REACTIONS (2)
  - Mouth ulceration [Recovering/Resolving]
  - Skin exfoliation [Recovering/Resolving]
